FAERS Safety Report 9682269 (Version 2)
Quarter: 2013Q4

REPORT INFORMATION
  Report Type: Report from Study
  Country: US (occurrence: US)
  Receive Date: 20131112
  Receipt Date: 20131114
  Transmission Date: 20140711
  Serious: Yes (Death, Hospitalization, Other)
  Sender: FDA-Public Use
  Company Number: US-ROCHE-1298253

PATIENT
  Age: 77 Year
  Sex: Female

DRUGS (29)
  1. HERCEPTIN [Suspect]
     Indication: VULVAR ADENOCARCINOMA
     Route: 065
     Dates: start: 201306
  2. HERCEPTIN [Suspect]
     Indication: METASTASES TO LYMPH NODES
  3. HERCEPTIN [Suspect]
     Indication: VULVAL CANCER METASTATIC
  4. HERCEPTIN [Suspect]
     Indication: VULVAL CANCER
  5. HERCEPTIN [Suspect]
     Indication: BONE CANCER
  6. HERCEPTIN [Suspect]
     Indication: NEOPLASM MALIGNANT
  7. PERJETA [Suspect]
     Indication: VULVAL CANCER
     Route: 065
  8. PERJETA [Suspect]
     Indication: BONE CANCER
  9. PERJETA [Suspect]
     Indication: NEOPLASM MALIGNANT
  10. TAXOL [Concomitant]
  11. LOVENOX [Concomitant]
     Route: 065
  12. ZOFRAN [Concomitant]
     Dosage: AS NEEDED
     Route: 048
     Dates: start: 20130723
  13. TIOTROPIUM [Concomitant]
     Route: 065
     Dates: start: 20130723
  14. OMEGA 3-6-9 [Concomitant]
     Route: 048
     Dates: start: 20130723
  15. HYZAAR (UNITED STATES) [Concomitant]
     Route: 048
     Dates: start: 20130723
  16. ACETAMINOPHEN [Concomitant]
     Dosage: EVERY 4-6 HOURS PRN FOR FEVER
     Route: 048
     Dates: start: 20130723
  17. NORCO [Concomitant]
     Dosage: AS NEEDED FOR MODERATE PAIN
     Route: 048
     Dates: start: 20130723
  18. BENTYL [Concomitant]
     Dosage: FOR CRAMPING FOR DIARRHEA
     Route: 048
     Dates: start: 20130723
  19. MYLICON [Concomitant]
     Dosage: AS NEEDED FOR GAS/BLOATING OR FOR GI UPSET
     Route: 048
     Dates: start: 20130723
  20. MAGNESIUM OXIDE [Concomitant]
     Dosage: 400 (241.3 MG) MG
     Route: 048
     Dates: start: 20130723
  21. MAGNESIUM OXIDE [Concomitant]
     Dosage: 400 (241.3) MG
     Route: 048
     Dates: start: 20130723
  22. K-PHOS ORIGINAL [Concomitant]
     Route: 048
     Dates: start: 20130723
  23. CALMOSEPTINE (UNITED STATES) [Concomitant]
     Dosage: 0.44-20.625 PERCENT OINTMENT
     Route: 065
     Dates: start: 20130723
  24. VASOLEX [Concomitant]
     Dosage: APPLY TO AFFECTED AREA
     Route: 065
     Dates: start: 20130723
  25. COUMADIN [Concomitant]
     Dosage: DOSING ADJUSTMENTS PER INR
     Route: 048
     Dates: start: 20130723
  26. ARMOUR THYROID [Concomitant]
     Route: 065
     Dates: start: 20130930
  27. SPIRIVA [Concomitant]
     Route: 065
     Dates: start: 20130930
  28. COMBIVENT [Concomitant]
     Route: 065
     Dates: start: 20130930
  29. MORPHINE [Concomitant]
     Route: 065
     Dates: start: 20130930

REACTIONS (35)
  - Death [Fatal]
  - Renal failure acute [Unknown]
  - Fall [Unknown]
  - Rhabdomyolysis [Unknown]
  - Bladder neoplasm [Unknown]
  - Vaginal haemorrhage [Unknown]
  - Urinary bladder haemorrhage [Unknown]
  - Neck pain [Unknown]
  - Metastases to bone [Unknown]
  - Metastases to spine [Unknown]
  - Normochromic normocytic anaemia [Unknown]
  - Haemoglobin decreased [Unknown]
  - Deep vein thrombosis [Unknown]
  - Hypertension [Unknown]
  - Hyperthyroidism [Unknown]
  - Electrolyte imbalance [Unknown]
  - Malnutrition [Unknown]
  - Hypocalcaemia [Unknown]
  - Blood magnesium decreased [Unknown]
  - Excoriation [Unknown]
  - Diarrhoea [Unknown]
  - Blister [Unknown]
  - Vitamin D deficiency [Unknown]
  - Local swelling [Unknown]
  - Urinary tract infection [Unknown]
  - Intervertebral disc displacement [Unknown]
  - Dehydration [Unknown]
  - Deep vein thrombosis [Unknown]
  - Haematuria [Unknown]
  - Metastases to liver [Unknown]
  - Metastases to lymph nodes [Unknown]
  - Hydronephrosis [Unknown]
  - Pruritus [Unknown]
  - Asthenia [Unknown]
  - Fatigue [Unknown]
